FAERS Safety Report 21751800 (Version 3)
Quarter: 2023Q1

REPORT INFORMATION
  Report Type: Report from Study
  Country: US (occurrence: None)
  Receive Date: 20221220
  Receipt Date: 20230201
  Transmission Date: 20230418
  Serious: Yes (Hospitalization)
  Sender: FDA-Public Use
  Company Number: US-Merck Healthcare KGaA-9373242

PATIENT
  Age: 61 Year
  Sex: Female

DRUGS (1)
  1. REBIF [Suspect]
     Active Substance: INTERFERON BETA-1A
     Indication: Multiple sclerosis
     Route: 058
     Dates: start: 20181130

REACTIONS (4)
  - Head discomfort [Unknown]
  - Loss of consciousness [Unknown]
  - Speech disorder [Unknown]
  - Tremor [Unknown]

NARRATIVE: CASE EVENT DATE: 20221210
